FAERS Safety Report 24139583 (Version 7)
Quarter: 2025Q1

REPORT INFORMATION
  Report Type: Report from Study
  Country: US (occurrence: US)
  Receive Date: 20240726
  Receipt Date: 20250128
  Transmission Date: 20250409
  Serious: Yes (Hospitalization)
  Sender: ROCHE
  Company Number: US-ROCHE-3552739

PATIENT
  Age: 81 Year
  Sex: Female

DRUGS (3)
  1. ACTEMRA [Suspect]
     Active Substance: TOCILIZUMAB
     Indication: Arteritis
     Dosage: DATE OF TREATMENT: 15/APR/2024.
     Route: 058
     Dates: start: 2017
  2. ACTEMRA [Suspect]
     Active Substance: TOCILIZUMAB
     Indication: Pulmonary hypertension
  3. ACTEMRA [Suspect]
     Active Substance: TOCILIZUMAB
     Indication: Giant cell arteritis

REACTIONS (7)
  - Off label use [Unknown]
  - Pain [Recovered/Resolved]
  - Inflammation [Recovered/Resolved]
  - Thrombosis [Recovered/Resolved]
  - Pneumonia [Unknown]
  - Illness [Unknown]
  - Herpes zoster [Unknown]
